FAERS Safety Report 6283508-6 (Version None)
Quarter: 2009Q3

REPORT INFORMATION
  Report Type: 
  Country: None (occurrence: None)
  Receive Date: 20090724
  Receipt Date: 20090413
  Transmission Date: 20100115
  Serious: No
  Sender: FDA-Public Use
  Company Number: US-ALEXION-A200900315

PATIENT
  Sex: Male

DRUGS (5)
  1. SOLIRIS [Suspect]
     Indication: PAROXYSMAL NOCTURNAL HAEMOGLOBINURIA
     Dosage: 600 MG, QWK X4WK
     Route: 042
     Dates: start: 20090318, end: 20090408
  2. SOLIRIS [Suspect]
     Dosage: UNK
     Route: 042
     Dates: start: 20090507
  3. VICODIN [Concomitant]
     Dosage: UNK
     Route: 048
  4. POTASSIUM CHLORIDE [Concomitant]
     Dosage: UNK
     Route: 048
  5. PREDNISONE TAB [Concomitant]
     Dosage: UNK
     Route: 048

REACTIONS (2)
  - OEDEMA PERIPHERAL [None]
  - PHARYNGITIS [None]
